FAERS Safety Report 15149907 (Version 3)
Quarter: 2019Q4

REPORT INFORMATION
  Report Type: Spontaneous
  Country: US (occurrence: US)
  Receive Date: 20180716
  Receipt Date: 20191113
  Transmission Date: 20200122
  Serious: Yes (Other)
  Sender: FDA-Public Use
  Company Number: US-ELI_LILLY_AND_COMPANY-US201807002610

PATIENT
  Age: 68 Year

DRUGS (2)
  1. VIAGRA [Suspect]
     Active Substance: SILDENAFIL CITRATE
     Indication: HYPOGONADISM
     Dosage: 100 MG, WEEKLY (1/W)
     Route: 065
     Dates: start: 20140212, end: 20140711
  2. CIALIS [Suspect]
     Active Substance: TADALAFIL
     Indication: HYPOGONADISM
     Dosage: 20 MG, WEEKLY (1/W)
     Route: 065
     Dates: start: 20130314, end: 20130827

REACTIONS (1)
  - Malignant melanoma stage IV [Unknown]

NARRATIVE: CASE EVENT DATE: 20160822
